FAERS Safety Report 15304973 (Version 1)
Quarter: 2018Q3

REPORT INFORMATION
  Report Type: Spontaneous
  Country: US (occurrence: US)
  Receive Date: 20180809
  Receipt Date: 20180809
  Transmission Date: 20181010
  Serious: Yes (Other)
  Sender: FDA-Public Use
  Company Number: None

PATIENT
  Age: 73 Year
  Sex: Female

DRUGS (12)
  1. ETHYL CHLORIDE [Suspect]
     Active Substance: ETHYL CHLORIDE
     Indication: ANAESTHESIA
     Route: 061
     Dates: start: 20180726, end: 20180726
  2. LISINOPRIL. [Concomitant]
     Active Substance: LISINOPRIL
  3. CALCIUM CITRATE + D3 [Concomitant]
  4. VALIUM [Concomitant]
     Active Substance: DIAZEPAM
  5. TYLENOL PM [Concomitant]
     Active Substance: ACETAMINOPHEN\DIPHENHYDRAMINE
  6. ZANTAC [Concomitant]
     Active Substance: RANITIDINE HYDROCHLORIDE
  7. BACLOFEN. [Concomitant]
     Active Substance: BACLOFEN
  8. TEGRETOL [Concomitant]
     Active Substance: CARBAMAZEPINE
  9. PREMARIN [Concomitant]
     Active Substance: ESTROGENS, CONJUGATED
  10. FELDENE [Concomitant]
     Active Substance: PIROXICAM
  11. BABY ASPIRIN [Concomitant]
     Active Substance: ASPIRIN
  12. DYAZIDE [Concomitant]
     Active Substance: HYDROCHLOROTHIAZIDE\TRIAMTERENE

REACTIONS (5)
  - Balance disorder [None]
  - Dizziness [None]
  - Fatigue [None]
  - Application site discolouration [None]
  - Dyspnoea [None]

NARRATIVE: CASE EVENT DATE: 20180726
